FAERS Safety Report 10065309 (Version 1)
Quarter: 2014Q2

REPORT INFORMATION
  Report Type: Spontaneous
  Country: US (occurrence: None)
  Receive Date: 20140407
  Receipt Date: 20140407
  Transmission Date: 20141212
  Serious: Yes (Hospitalization)
  Sender: FDA-Public Use
  Company Number: None

PATIENT
  Age: 76 Year
  Sex: Male
  Weight: 91 kg

DRUGS (2)
  1. DICLOFENAC [Suspect]
     Indication: PAIN
     Route: 048
     Dates: start: 20131209, end: 20140224
  2. ASPIRIN [Suspect]
     Indication: CARDIAC DISORDER
     Route: 048
     Dates: start: 20070809, end: 20140226

REACTIONS (4)
  - Vomiting projectile [None]
  - Abdominal pain upper [None]
  - Haemorrhage [None]
  - Gastrointestinal haemorrhage [None]
